FAERS Safety Report 12859588 (Version 1)
Quarter: 2016Q4

REPORT INFORMATION
  Report Type: Report from Study
  Country: DE (occurrence: DE)
  Receive Date: 20161018
  Receipt Date: 20161018
  Transmission Date: 20170207
  Serious: Yes (Hospitalization)
  Sender: FDA-Public Use
  Company Number: DE-B.I. PHARMACEUTICALS,INC./RIDGEFIELD-2016-BI-34000BI

PATIENT
  Age: 76 Year
  Sex: Male
  Weight: 94 kg

DRUGS (2)
  1. BLINDED TIOTROPIUM BROMIDE+OLODATEROL [Suspect]
     Active Substance: OLODATEROL HYDROCHLORIDE\TIOTROPIUM BROMIDE MONOHYDRATE
     Indication: CHRONIC OBSTRUCTIVE PULMONARY DISEASE
     Route: 055
     Dates: start: 20160216
  2. ACC [Concomitant]
     Active Substance: ACETYLCYSTEINE
     Indication: LOWER RESPIRATORY TRACT INFECTION
     Dosage: DAILY DOSE: 600 MG AS REQUIRED
     Route: 055
     Dates: start: 20160401

REACTIONS (2)
  - Lymphadenopathy [Not Recovered/Not Resolved]
  - Tongue neoplasm malignant stage unspecified [Not Recovered/Not Resolved]

NARRATIVE: CASE EVENT DATE: 20160412
